FAERS Safety Report 4667028-8 (Version None)
Quarter: 2005Q2

REPORT INFORMATION
  Report Type: 
  Country: None (occurrence: None)
  Receive Date: 20050520
  Receipt Date: 20040329
  Transmission Date: 20051028
  Serious: Yes (Other)
  Sender: FDA-Public Use
  Company Number: PHEH2004US03632

PATIENT
  Age: 63 Year
  Sex: Female
  Weight: 63 kg

DRUGS (9)
  1. ZOMETA [Suspect]
     Indication: HYPERCALCAEMIA OF MALIGNANCY
     Dosage: 4 MG, QMO
     Route: 042
     Dates: start: 20020501, end: 20021101
  2. ZOMETA [Suspect]
     Dosage: 4 MG, QMO
     Route: 042
     Dates: start: 20030101, end: 20030201
  3. ZOMETA [Suspect]
     Dosage: 4 MG, QMO
     Route: 042
     Dates: start: 20030401, end: 20030701
  4. TAXOTERE [Concomitant]
     Dates: start: 20020601, end: 20020801
  5. DECADRON [Concomitant]
     Dosage: 20 MG, QW
     Dates: start: 20020601, end: 20020801
  6. KYTRIL [Concomitant]
     Dosage: 2 MG, QW
     Dates: start: 20020601, end: 20020801
  7. XELODA [Concomitant]
  8. FEMARA [Concomitant]
     Indication: BREAST CANCER
     Dosage: 2.5 MG, QD
  9. AREDIA [Suspect]
     Indication: HYPERCALCAEMIA OF MALIGNANCY
     Dosage: 90 MG, QMO
     Route: 042
     Dates: start: 20020124, end: 20020415

REACTIONS (4)
  - ASEPTIC NECROSIS BONE [None]
  - INFECTION [None]
  - JAW DISORDER [None]
  - PAIN [None]
